FAERS Safety Report 5468854-8 (Version None)
Quarter: 2007Q3

REPORT INFORMATION
  Report Type: 
  Country: None (occurrence: None)
  Receive Date: 20070926
  Receipt Date: 20070918
  Transmission Date: 20080115
  Serious: Yes (Other)
  Sender: FDA-Public Use
  Company Number: US-PFIZER INC-2007078240

PATIENT
  Sex: Female
  Weight: 75.3 kg

DRUGS (4)
  1. LIPITOR [Suspect]
     Indication: BLOOD CHOLESTEROL INCREASED
     Dates: start: 19970501, end: 20070601
  2. METFORMIN [Concomitant]
     Indication: DIABETES MELLITUS
  3. LEVOXYL [Concomitant]
     Indication: HYPOTHYROIDISM
     Dosage: DAILY DOSE:88MG
  4. BENAZEPRIL HYDROCHLORIDE [Concomitant]
     Indication: HYPERTENSION
     Dosage: DAILY DOSE:10MG

REACTIONS (6)
  - ALANINE AMINOTRANSFERASE INCREASED [None]
  - ANTINUCLEAR ANTIBODY INCREASED [None]
  - ASPARTATE AMINOTRANSFERASE INCREASED [None]
  - AUTOIMMUNE DISORDER [None]
  - BLOOD CHOLESTEROL INCREASED [None]
  - URINARY TRACT INFECTION [None]
